FAERS Safety Report 14038770 (Version 1)
Quarter: 2017Q4

REPORT INFORMATION
  Report Type: Spontaneous
  Country: US (occurrence: US)
  Receive Date: 20171004
  Receipt Date: 20171004
  Transmission Date: 20180321
  Serious: No
  Sender: FDA-Public Use
  Company Number: US-INDIVIOR LIMITED-INDV-097219-2016

PATIENT
  Sex: Female

DRUGS (2)
  1. SUBOXONE [Suspect]
     Active Substance: BUPRENORPHINE HYDROCHLORIDE\NALOXONE HYDROCHLORIDE
     Indication: PRODUCT USED FOR UNKNOWN INDICATION
     Dosage: CUTTING AND TAKING QUARTER OF A DOSE TWICE DAILY
     Route: 060
     Dates: start: 20161204
  2. SUBOXONE [Suspect]
     Active Substance: BUPRENORPHINE HYDROCHLORIDE\NALOXONE HYDROCHLORIDE
     Dosage: TOOK A QUARTER OF THE DOSE
     Route: 060
     Dates: start: 20161208

REACTIONS (3)
  - Product use issue [Unknown]
  - Intentional underdose [Unknown]
  - Product preparation error [Unknown]

NARRATIVE: CASE EVENT DATE: 20161204
